FAERS Safety Report 11603479 (Version 4)
Quarter: 2016Q1

REPORT INFORMATION
  Report Type: Report from Study
  Country: US (occurrence: US)
  Receive Date: 20151007
  Receipt Date: 20160222
  Transmission Date: 20160525
  Serious: Yes (Other)
  Sender: FDA-Public Use
  Company Number: US-009507513-1510USA001200

PATIENT

DRUGS (5)
  1. TEMODAR [Suspect]
     Active Substance: TEMOZOLOMIDE
     Dosage: 200 MG/M2, DAYS 2-5
     Route: 048
  2. INTRON A [Suspect]
     Active Substance: INTERFERON ALFA-2B
     Dosage: 5 MILLION IU, DAYS 2-6
     Route: 058
  3. RECOMBINANT HUMAN INTERLEUKIN-2 (125ALA) [Suspect]
     Active Substance: ALDESLEUKIN
     Dosage: 7 OR 9 MILLION IU/M2 AS A 96 HOUR CONTINUOUS INFUSION
  4. CISPLATIN. [Suspect]
     Active Substance: CISPLATIN
     Dosage: 25 MG/M2, DAYS 2-4
  5. IPILIMUMAB [Suspect]
     Active Substance: IPILIMUMAB
     Dosage: (LMGLKG, 3MGLKG, 10MGLKG) D1 IN A 3+3 DOSE ESCALATION DESIGN

REACTIONS (1)
  - Dermatitis [Unknown]
